FAERS Safety Report 5591412-1 (Version None)
Quarter: 2008Q1

REPORT INFORMATION
  Report Type: 
  Country: None (occurrence: None)
  Receive Date: 20080111
  Receipt Date: 20080111
  Transmission Date: 20080703
  Serious: No
  Sender: FDA-Public Use
  Company Number: None

PATIENT
  Age: 83 Year
  Sex: Male
  Weight: 95.25 kg

DRUGS (1)
  1. EZETIMIBE [Suspect]
     Indication: CEREBROVASCULAR ACCIDENT PROPHYLAXIS
     Dosage: 5 MG EVERY DAY PO
     Route: 048
     Dates: start: 20070712, end: 20080104

REACTIONS (3)
  - ABDOMINAL PAIN [None]
  - FAECES DISCOLOURED [None]
  - THROMBOCYTOPENIA [None]
